FAERS Safety Report 13269737 (Version 1)
Quarter: 2017Q1

REPORT INFORMATION
  Report Type: Spontaneous
  Country: AR (occurrence: AR)
  Receive Date: 20170224
  Receipt Date: 20170224
  Transmission Date: 20170428
  Serious: Yes (Disabling)
  Sender: FDA-Public Use
  Company Number: AR-GALDERMA-AR17001048

PATIENT
  Age: 40 Year
  Sex: Female
  Weight: 56 kg

DRUGS (1)
  1. MIRVASO [Suspect]
     Active Substance: BRIMONIDINE TARTRATE
     Indication: ROSACEA
     Route: 061
     Dates: start: 201411, end: 201411

REACTIONS (5)
  - Sensory loss [Recovered/Resolved with Sequelae]
  - Rosacea [Recovered/Resolved with Sequelae]
  - Off label use [Recovered/Resolved]
  - Erythema [Recovered/Resolved]
  - Telangiectasia [Recovered/Resolved with Sequelae]

NARRATIVE: CASE EVENT DATE: 201411
